FAERS Safety Report 4639080-7 (Version None)
Quarter: 2005Q2

REPORT INFORMATION
  Report Type: 
  Country: None (occurrence: None)
  Receive Date: 20050415
  Receipt Date: 20050415
  Transmission Date: 20051028
  Serious: No
  Sender: FDA-Public Use
  Company Number: None

PATIENT
  Age: 74 Year
  Sex: Female
  Weight: 67.586 kg

DRUGS (1)
  1. LEVOTHYROXINE SODIUM [Suspect]
     Dosage: 75 MCG PO
     Route: 048
     Dates: start: 20050301, end: 20050404

REACTIONS (3)
  - ABDOMINAL PAIN [None]
  - NAUSEA [None]
  - PHARMACEUTICAL PRODUCT COMPLAINT [None]
